FAERS Safety Report 7550970-8 (Version None)
Quarter: 2011Q2

REPORT INFORMATION
  Report Type: 
  Country: None (occurrence: None)
  Receive Date: 20110616
  Receipt Date: 20110608
  Transmission Date: 20111010
  Serious: Yes (Hospitalization, Other)
  Sender: FDA-Public Use
  Company Number: JP-ASTELLAS-2011JP002656

PATIENT
  Sex: Male
  Weight: 62 kg

DRUGS (11)
  1. CEFAZOLIN [Suspect]
     Indication: ANTIBIOTIC PROPHYLAXIS
     Dosage: 1 G, BID
     Route: 042
     Dates: start: 20110317, end: 20110320
  2. TIENAM [Concomitant]
     Indication: SEPSIS
  3. MAGNESIUM SULFATE [Concomitant]
     Indication: CONSTIPATION
     Dosage: 1 DF, TID
     Route: 048
     Dates: start: 20110309, end: 20110316
  4. MAGNESIUM SULFATE [Concomitant]
     Dosage: 1 DF, TID
     Route: 048
     Dates: start: 20110405, end: 20110416
  5. VESICARE [Suspect]
     Indication: BENIGN PROSTATIC HYPERPLASIA
     Dosage: 2.5 MG, BID
     Route: 048
     Dates: start: 20110309, end: 20110310
  6. TIENAM [Concomitant]
     Indication: PYREXIA
     Dosage: 0.5 G, BID
     Route: 042
     Dates: start: 20110326, end: 20110410
  7. MINOFIT [Concomitant]
     Indication: HEPATIC FUNCTION ABNORMAL
     Dosage: 40 MG, UID/QD
     Route: 042
     Dates: start: 20110322, end: 20110411
  8. MIYA BM [Concomitant]
     Dosage: 1 DF, TID
     Route: 048
     Dates: start: 20110404, end: 20110416
  9. VESICARE [Suspect]
     Dosage: 2.5 MG, UID/QD
     Route: 048
     Dates: start: 20110311, end: 20110316
  10. VESICARE [Suspect]
     Dosage: 2.5 MG, UID/QD
     Route: 048
     Dates: start: 20110325, end: 20110325
  11. MS REISHIPPU [Concomitant]
     Indication: BACK PAIN
     Dosage: UNK
     Route: 062
     Dates: start: 20110322, end: 20110325

REACTIONS (3)
  - CHOLANGITIS [None]
  - RHABDOMYOLYSIS [None]
  - HEPATIC FUNCTION ABNORMAL [None]
